FAERS Safety Report 16467154 (Version 1)
Quarter: 2019Q2

REPORT INFORMATION
  Report Type: Spontaneous
  Country: JP (occurrence: JP)
  Receive Date: 20190624
  Receipt Date: 20190624
  Transmission Date: 20190711
  Serious: Yes (Other)
  Sender: FDA-Public Use
  Company Number: JP-REGENERON PHARMACEUTICALS, INC.-2019-37179

PATIENT

DRUGS (26)
  1. AZEPTIN                            /00884001/ [Concomitant]
     Active Substance: AZELASTINE
     Indication: PRODUCT USED FOR UNKNOWN INDICATION
     Dosage: UNKNOWN
  2. EYLEA [Suspect]
     Active Substance: AFLIBERCEPT
     Dosage: FROM MAR 26TH TO 28TH, 2015, ONCE
     Route: 031
  3. EYLEA [Suspect]
     Active Substance: AFLIBERCEPT
     Dosage: FROM SEP 4TH TO 6TH, 2017, ONCE
     Route: 031
  4. EYLEA [Suspect]
     Active Substance: AFLIBERCEPT
     Dosage: UNK UNK, ONCE
     Route: 031
     Dates: start: 20190228, end: 20190228
  5. EYLEA [Suspect]
     Active Substance: AFLIBERCEPT
     Dosage: UNK UNK, ONCE
     Route: 031
     Dates: start: 20190611, end: 20190611
  6. EYLEA [Suspect]
     Active Substance: AFLIBERCEPT
     Dosage: FROM JUL 9TH TO 11TH, 2015, ONCE
     Route: 031
  7. EYLEA [Suspect]
     Active Substance: AFLIBERCEPT
     Dosage: FROM MAR 24TH TO 26TH, 2016, ONCE
     Route: 031
  8. EYLEA [Suspect]
     Active Substance: AFLIBERCEPT
     Dosage: FROM APR 3TH TO 5TH, 2017, ONCE
     Route: 031
  9. EYLEA [Suspect]
     Active Substance: AFLIBERCEPT
     Dosage: UNK UNK, ONCE
     Route: 031
     Dates: start: 20171221, end: 20171221
  10. KENACORT [Concomitant]
     Active Substance: TRIAMCINOLONE
     Dosage: UNK UNK, ONCE
     Route: 031
     Dates: start: 20171221, end: 20171221
  11. PREDNISOLONE. [Concomitant]
     Active Substance: PREDNISOLONE
     Indication: PRODUCT USED FOR UNKNOWN INDICATION
     Dosage: 4.5MG, QOD
  12. VITAMINS NOS [Concomitant]
     Active Substance: VITAMINS
     Indication: PRODUCT USED FOR UNKNOWN INDICATION
     Dosage: UNK
  13. NU-LOTAN [Concomitant]
     Active Substance: LOSARTAN POTASSIUM
     Indication: PRODUCT USED FOR UNKNOWN INDICATION
     Dosage: UNKNOWN
  14. EYLEA [Suspect]
     Active Substance: AFLIBERCEPT
     Indication: CATARACT
     Dosage: UNK, ONCE
     Route: 031
     Dates: start: 20130218, end: 20130218
  15. EYLEA [Suspect]
     Active Substance: AFLIBERCEPT
     Indication: AGE-RELATED MACULAR DEGENERATION
     Dosage: FROM MAR 11TH TO 13TH, 2013, ONCE
     Route: 031
  16. EYLEA [Suspect]
     Active Substance: AFLIBERCEPT
     Dosage: UNK UNK, ONCE
     Route: 031
     Dates: start: 20180511, end: 20180511
  17. KENACORT [Concomitant]
     Active Substance: TRIAMCINOLONE
     Indication: CHORIORETINOPATHY
     Dosage: UNK
     Route: 031
  18. PYCNOGENOL [Concomitant]
     Active Substance: DIETARY SUPPLEMENT
     Indication: PRODUCT USED FOR UNKNOWN INDICATION
     Dosage: UNKNOWN
  19. EYLEA [Suspect]
     Active Substance: AFLIBERCEPT
     Indication: CHORIORETINOPATHY
     Dosage: FROM AUG 4TH TO 6TH, 2014, ONCE
     Route: 031
  20. EYLEA [Suspect]
     Active Substance: AFLIBERCEPT
     Dosage: FROM NOV 10TH TO 12TH, 2014, ONCE
     Route: 031
  21. EYLEA [Suspect]
     Active Substance: AFLIBERCEPT
     Dosage: FROM NOV 12TH TO 14TH, 2015, ONCE
     Route: 031
  22. EYLEA [Suspect]
     Active Substance: AFLIBERCEPT
     Indication: RETINAL DEGENERATION
     Dosage: FROM APR 14TH TO 16TH, 2014, ONCE
     Route: 031
  23. EYLEA [Suspect]
     Active Substance: AFLIBERCEPT
     Dosage: FROM JUL 7TH TO 9TH, 2016, ONCE
     Route: 031
  24. EYLEA [Suspect]
     Active Substance: AFLIBERCEPT
     Dosage: FROM OCT 10TH TO 12TH, 2016,ONCE
     Route: 031
  25. COLCHICINE. [Concomitant]
     Active Substance: COLCHICINE
     Indication: PRODUCT USED FOR UNKNOWN INDICATION
     Dosage: UNK
  26. HORIZON [Concomitant]
     Active Substance: DIAZEPAM
     Indication: PRODUCT USED FOR UNKNOWN INDICATION
     Dosage: UNKNOWN

REACTIONS (6)
  - Drug ineffective [Unknown]
  - Inappropriate schedule of product administration [Unknown]
  - Retinal injury [Unknown]
  - Retinal haemorrhage [Unknown]
  - Choroidal neovascularisation [Unknown]
  - Inappropriate schedule of product administration [Unknown]

NARRATIVE: CASE EVENT DATE: 201303
